FAERS Safety Report 10445690 (Version 4)
Quarter: 2019Q4

REPORT INFORMATION
  Report Type: Spontaneous
  Country: GB (occurrence: GB)
  Receive Date: 20140910
  Receipt Date: 20191217
  Transmission Date: 20200122
  Serious: Yes (Death, Hospitalization, Other)
  Sender: FDA-Public Use
  Company Number: PHFR2014GB006128

PATIENT
  Age: 76 Year
  Sex: Female
  Weight: 57 kg

DRUGS (9)
  1. LANSOPRAZOLE. [Concomitant]
     Active Substance: LANSOPRAZOLE
     Indication: PRODUCT USED FOR UNKNOWN INDICATION
     Dosage: UNK
     Route: 065
  2. CALCIUM [Concomitant]
     Active Substance: CALCIUM
     Indication: PRODUCT USED FOR UNKNOWN INDICATION
     Dosage: UNK
     Route: 048
  3. CLOZARIL [Suspect]
     Active Substance: CLOZAPINE
     Indication: PRODUCT USED FOR UNKNOWN INDICATION
     Dosage: UNK
     Route: 048
  4. CAPECITABINE. [Suspect]
     Active Substance: CAPECITABINE
     Indication: HER-2 POSITIVE BREAST CANCER
     Dosage: 1500 MG, BID
     Route: 048
  5. ALL CLEAR [Concomitant]
     Indication: PRODUCT USED FOR UNKNOWN INDICATION
     Dosage: UNK
     Route: 065
     Dates: start: 201403
  6. HERCEPTIN [Concomitant]
     Active Substance: TRASTUZUMAB
     Indication: PRODUCT USED FOR UNKNOWN INDICATION
     Dosage: 347 MG (ONCE EVERY 3 WEEKS)
     Route: 042
  7. LENOGRASTIM [Concomitant]
     Active Substance: LENOGRASTIM
     Indication: WHITE BLOOD CELL COUNT DECREASED
     Dosage: UNK
     Route: 065
  8. CODEINE [Concomitant]
     Active Substance: CODEINE
     Indication: PRODUCT USED FOR UNKNOWN INDICATION
     Dosage: SINGLE DOSE ONLY
     Route: 048
  9. CLOZARIL [Suspect]
     Active Substance: CLOZAPINE
     Dosage: 225 MG, QD
     Route: 048

REACTIONS (16)
  - Breast cancer stage IV [Unknown]
  - Hypophagia [Unknown]
  - Acute kidney injury [Unknown]
  - Fluid retention [Unknown]
  - Jaundice [Unknown]
  - Metastases to spine [Unknown]
  - Chromaturia [Unknown]
  - Weight decreased [Unknown]
  - White blood cell count decreased [Unknown]
  - HER-2 positive breast cancer [Unknown]
  - Metastases to chest wall [Unknown]
  - Asthenia [Unknown]
  - Diarrhoea [Recovered/Resolved]
  - Death [Fatal]
  - Metastases to liver [Unknown]
  - Malaise [Unknown]

NARRATIVE: CASE EVENT DATE: 2011
